FAERS Safety Report 5102660-9 (Version None)
Quarter: 2006Q3

REPORT INFORMATION
  Report Type: 
  Country: None (occurrence: None)
  Receive Date: 20060907
  Receipt Date: 20060829
  Transmission Date: 20061208
  Serious: Yes (Life-Threatening, Hospitalization)
  Sender: FDA-Public Use
  Company Number: 2006092352

PATIENT
  Age: 41 Year
  Sex: Female
  Weight: 80 kg

DRUGS (2)
  1. LYRICA [Suspect]
     Indication: TRIGEMINAL NEURALGIA
     Dosage: 600 MG (300 MG,2 IN 1 D),ORAL
     Route: 048
     Dates: start: 20060501
  2. DURAGESIC-100 [Suspect]
     Indication: TRIGEMINAL NEURALGIA
     Dosage: (50 MCG),TRANSDERMAL
     Route: 062
     Dates: start: 20060101

REACTIONS (3)
  - DRUG INTERACTION [None]
  - LOSS OF CONSCIOUSNESS [None]
  - OEDEMA [None]
